FAERS Safety Report 18872188 (Version 2)
Quarter: 2021Q2

REPORT INFORMATION
  Report Type: Spontaneous
  Country: US (occurrence: US)
  Receive Date: 20210210
  Receipt Date: 20210429
  Transmission Date: 20210717
  Serious: No
  Sender: FDA-Public Use
  Company Number: US-GLENMARK PHARMACEUTICALS-2020GMK050888

PATIENT

DRUGS (6)
  1. VASELINE [PARAFFIN] [Concomitant]
     Active Substance: PARAFFIN
     Indication: SKIN FISSURES
  2. VASELINE [PARAFFIN] [Concomitant]
     Active Substance: PARAFFIN
     Indication: CHAPPED LIPS
  3. VASELINE [PARAFFIN] [Concomitant]
     Active Substance: PARAFFIN
     Indication: DRY SKIN PROPHYLAXIS
     Dosage: UNK
     Route: 061
     Dates: start: 202010
  4. MOMETASONE FUROATE OINTMENT USP, 0.1% [Suspect]
     Active Substance: MOMETASONE FUROATE
     Indication: ECZEMA
     Dosage: UNK, BID
     Route: 061
     Dates: start: 20201206, end: 20201207
  5. TACROLIMUS. [Suspect]
     Active Substance: TACROLIMUS
     Indication: ECZEMA
     Dosage: UNK, BID
     Route: 061
     Dates: start: 20201206
  6. VASELINE [PARAFFIN] [Concomitant]
     Active Substance: PARAFFIN
     Indication: DRY EYE

REACTIONS (3)
  - Pain of skin [Recovered/Resolved]
  - Application site pain [Recovered/Resolved]
  - Product administered at inappropriate site [Unknown]

NARRATIVE: CASE EVENT DATE: 20201206
